FAERS Safety Report 22254935 (Version 2)
Quarter: 2023Q2

REPORT INFORMATION
  Report Type: Spontaneous
  Country: US (occurrence: US)
  Receive Date: 20230426
  Receipt Date: 20230515
  Transmission Date: 20230721
  Serious: No
  Sender: FDA-Public Use
  Company Number: US-BRISTOL-MYERS SQUIBB COMPANY-2023-057912

PATIENT
  Age: 87 Year
  Sex: Male

DRUGS (2)
  1. POMALYST [Suspect]
     Active Substance: POMALIDOMIDE
     Indication: Plasma cell myeloma
     Route: 048
     Dates: start: 20220614
  2. POMALYST [Suspect]
     Active Substance: POMALIDOMIDE
     Dosage: FREQUENCY: 14 DAYS ON /14 DAYS OFF SCHEDULE
     Route: 048
     Dates: start: 202106

REACTIONS (2)
  - Laboratory test abnormal [Unknown]
  - Off label use [Unknown]

NARRATIVE: CASE EVENT DATE: 20220614
